FAERS Safety Report 22072935 (Version 4)
Quarter: 2023Q2

REPORT INFORMATION
  Report Type: Spontaneous
  Country: DK (occurrence: DK)
  Receive Date: 20230308
  Receipt Date: 20230623
  Transmission Date: 20230722
  Serious: Yes (Other)
  Sender: FDA-Public Use
  Company Number: None

PATIENT
  Age: 69 Year
  Sex: Male

DRUGS (1)
  1. DICLOXACILLIN SODIUM [Suspect]
     Active Substance: DICLOXACILLIN SODIUM
     Indication: Erysipelas
     Dosage: 4000 MG, QD (DOSE TO BE TAKEN FOR 10 DAYS, UNKNOWN IF IT ACTUALLY HAS BEEN), STRENGTH: 500 MG
     Route: 048
     Dates: start: 20220919

REACTIONS (1)
  - Suspected transmission of an infectious agent via product [Unknown]

NARRATIVE: CASE EVENT DATE: 20221009
